FAERS Safety Report 20576531 (Version 2)
Quarter: 2022Q1

REPORT INFORMATION
  Report Type: Spontaneous
  Country: US (occurrence: US)
  Receive Date: 20220310
  Receipt Date: 20220323
  Transmission Date: 20220424
  Serious: Yes (Other)
  Sender: FDA-Public Use
  Company Number: US-TEVA-2022-US-2014113

PATIENT
  Age: 7 Decade
  Sex: Female

DRUGS (6)
  1. RISPERIDONE [Suspect]
     Active Substance: RISPERIDONE
     Indication: Schizophrenia
     Route: 065
  2. HALOPERIDOL [Suspect]
     Active Substance: HALOPERIDOL
     Indication: Schizophrenia
     Route: 065
  3. CLOZAPINE [Interacting]
     Active Substance: CLOZAPINE
     Indication: Schizophrenia
     Dosage: 400 MILLIGRAM DAILY; 150 MG IN THE MORNING AND 250 MG AT BEDTIME
     Route: 065
  4. CLOZAPINE [Interacting]
     Active Substance: CLOZAPINE
     Dosage: 125 MG DECREASE IN MORNING DOSE OF 150MG
     Route: 065
  5. CINACALCET [Interacting]
     Active Substance: CINACALCET
     Indication: Blood calcium increased
     Route: 048
  6. CINACALCET [Interacting]
     Active Substance: CINACALCET
     Dosage: 30 MILLIGRAM DAILY;
     Route: 048

REACTIONS (3)
  - Torticollis [Recovered/Resolved]
  - Drug interaction [Unknown]
  - Therapy non-responder [Unknown]
